FAERS Safety Report 20948348 (Version 1)
Quarter: 2022Q2

REPORT INFORMATION
  Report Type: Spontaneous
  Country: US (occurrence: None)
  Receive Date: 20220611
  Receipt Date: 20220611
  Transmission Date: 20220720
  Serious: No
  Sender: FDA-Public Use
  Company Number: 2022A208494

PATIENT

DRUGS (2)
  1. BYDUREON BCISE [Suspect]
     Active Substance: EXENATIDE
     Indication: Diabetes mellitus
     Route: 065
     Dates: start: 2021
  2. LANTUS [Concomitant]
     Active Substance: INSULIN GLARGINE
     Dosage: LANTUS 10MG-20MG,AS NEEDED.
     Route: 065

REACTIONS (1)
  - Blood glucose increased [Unknown]
